FAERS Safety Report 8843617 (Version 3)
Quarter: 2013Q2

REPORT INFORMATION
  Report Type: Spontaneous
  Country: US (occurrence: US)
  Receive Date: 20121016
  Receipt Date: 20130412
  Transmission Date: 20140414
  Serious: Yes (Hospitalization)
  Sender: FDA-Public Use
  Company Number: US-ASTRAZENECA-2012SE75403

PATIENT
  Age: 53 Year
  Sex: Female
  Weight: 83.5 kg

DRUGS (11)
  1. ENTOCORT EC [Suspect]
     Indication: CROHN^S DISEASE
     Route: 048
     Dates: start: 201211
  2. ENTOCORT EC [Suspect]
     Indication: CROHN^S DISEASE
     Dosage: 9 MG, DAILY, GENERIC
     Route: 048
     Dates: start: 201211
  3. NEXIUM [Suspect]
     Route: 048
  4. LISINOPRIL [Suspect]
     Indication: HYPERTENSION
     Route: 048
  5. PRILOSEC [Suspect]
     Route: 048
  6. RANITIDINE [Concomitant]
  7. VIT C AND D [Concomitant]
     Indication: VITAMIN SUPPLEMENTATION
     Dosage: DAILY
     Route: 048
  8. CLARITIN [Concomitant]
     Indication: MULTIPLE ALLERGIES
     Dosage: PRN
  9. BENTYL [Concomitant]
  10. PREMARIN [Concomitant]
     Dosage: 10 MG
  11. VITAMINS [Concomitant]

REACTIONS (8)
  - Diverticulitis [Unknown]
  - Cystitis noninfective [Unknown]
  - Crohn^s disease [Unknown]
  - Condition aggravated [Unknown]
  - Abdominal pain upper [Unknown]
  - Insomnia [Recovering/Resolving]
  - Drug dose omission [Unknown]
  - Drug ineffective [Unknown]
